FAERS Safety Report 21438792 (Version 5)
Quarter: 2022Q4

REPORT INFORMATION
  Report Type: Report from Study
  Country: US (occurrence: US)
  Receive Date: 20221011
  Receipt Date: 20221223
  Transmission Date: 20230113
  Serious: Yes (Other)
  Sender: FDA-Public Use
  Company Number: US-ABBVIE-4149078

PATIENT
  Sex: Male

DRUGS (2)
  1. VENCLEXTA [Suspect]
     Active Substance: VENETOCLAX
     Indication: B-cell small lymphocytic lymphoma
     Route: 048
  2. VENCLEXTA [Suspect]
     Active Substance: VENETOCLAX
     Indication: B-cell small lymphocytic lymphoma
     Route: 048
     Dates: start: 20210517

REACTIONS (9)
  - Sinusitis [Recovered/Resolved]
  - Therapeutic product effect decreased [Unknown]
  - Lower respiratory tract infection [Unknown]
  - Lymphadenopathy [Unknown]
  - Sinusitis [Unknown]
  - Bone swelling [Unknown]
  - Pleural effusion [Unknown]
  - Pericardial effusion [Unknown]
  - Adverse drug reaction [Unknown]

NARRATIVE: CASE EVENT DATE: 20160101
